FAERS Safety Report 25144430 (Version 3)
Quarter: 2025Q2

REPORT INFORMATION
  Report Type: Spontaneous
  Country: FI (occurrence: FI)
  Receive Date: 20250401
  Receipt Date: 20250612
  Transmission Date: 20250716
  Serious: Yes (Hospitalization, Other)
  Sender: TEVA
  Company Number: FI-TEVA-VS-3315570

PATIENT
  Age: 41 Year
  Sex: Male

DRUGS (3)
  1. FINGOLIMOD [Suspect]
     Active Substance: FINGOLIMOD
     Indication: Multiple sclerosis
     Route: 048
     Dates: start: 201806, end: 2023
  2. AMPHOTERICIN B [Suspect]
     Active Substance: AMPHOTERICIN B
     Indication: Cryptococcal meningoencephalitis
     Route: 042
     Dates: start: 202311
  3. FLUCONAZOLE [Suspect]
     Active Substance: FLUCONAZOLE
     Indication: Cryptococcal meningoencephalitis
     Route: 042
     Dates: start: 202311

REACTIONS (6)
  - Immune reconstitution inflammatory syndrome [Recovering/Resolving]
  - Gamma-glutamyltransferase increased [Recovered/Resolved]
  - Cryptococcal meningoencephalitis [Recovered/Resolved]
  - Blood alkaline phosphatase increased [Recovered/Resolved]
  - Alanine aminotransferase increased [Recovered/Resolved]
  - Lymphocyte count decreased [Recovered/Resolved]

NARRATIVE: CASE EVENT DATE: 20180701
